FAERS Safety Report 21852667 (Version 2)
Quarter: 2023Q2

REPORT INFORMATION
  Report Type: Report from Study
  Country: US (occurrence: US)
  Receive Date: 20230112
  Receipt Date: 20230405
  Transmission Date: 20230721
  Serious: No
  Sender: FDA-Public Use
  Company Number: US-ABBVIE-4236647

PATIENT
  Sex: Female

DRUGS (1)
  1. HUMIRA [Suspect]
     Active Substance: ADALIMUMAB
     Indication: Ankylosing spondylitis
     Dosage: CITRATE FREE FORM STRENGTH: 40MG
     Route: 058
     Dates: start: 20221205

REACTIONS (5)
  - Increased tendency to bruise [Unknown]
  - Dry eye [Unknown]
  - Oropharyngeal discomfort [Unknown]
  - Headache [Recovering/Resolving]
  - Injection site pain [Recovering/Resolving]
